FAERS Safety Report 11048379 (Version 1)
Quarter: 2015Q2

REPORT INFORMATION
  Report Type: Spontaneous
  Country: US (occurrence: US)
  Receive Date: 20150420
  Receipt Date: 20150420
  Transmission Date: 20150821
  Serious: No
  Sender: FDA-Public Use
  Company Number: US-BIOGENIDEC-2015BI040077

PATIENT
  Sex: Female

DRUGS (1)
  1. TECFIDERA [Suspect]
     Active Substance: DIMETHYL FUMARATE
     Indication: RELAPSING-REMITTING MULTIPLE SCLEROSIS
     Route: 048
     Dates: start: 2013

REACTIONS (12)
  - Dry skin [Unknown]
  - Gait disturbance [Unknown]
  - Neuralgia [Unknown]
  - Mobility decreased [Unknown]
  - Burning sensation [Unknown]
  - Flushing [Unknown]
  - Cheilitis [Unknown]
  - Drug ineffective [Unknown]
  - Erythema [Unknown]
  - Paraesthesia [Unknown]
  - Asthenia [Unknown]
  - Pruritus [Unknown]
